FAERS Safety Report 12321313 (Version 2)
Quarter: 2016Q2

REPORT INFORMATION
  Report Type: Spontaneous
  Country: NO (occurrence: NO)
  Receive Date: 20160502
  Receipt Date: 20160505
  Transmission Date: 20160815
  Serious: Yes (Hospitalization, Other)
  Sender: FDA-Public Use
  Company Number: PHHY2016NO046357

PATIENT
  Age: 68 Year
  Sex: Male
  Weight: 82.8 kg

DRUGS (4)
  1. LEVAXIN [Concomitant]
     Active Substance: LEVOTHYROXINE SODIUM
     Indication: HYPOTHYROIDISM
     Dosage: 50 MG, QD
     Route: 048
  2. TAFINLAR [Suspect]
     Active Substance: DABRAFENIB MESYLATE
     Indication: MALIGNANT MELANOMA
     Dosage: 150 MG, BID
     Route: 048
     Dates: start: 20160322, end: 20160327
  3. KLEXANE [Concomitant]
     Active Substance: ENOXAPARIN
     Indication: EMBOLISM
     Dosage: 40 MG, QD
     Route: 058
  4. CORTISON [Concomitant]
     Active Substance: CORTISONE ACETATE
     Indication: PRODUCT USED FOR UNKNOWN INDICATION
     Dosage: 25 MG, (1 0 1/2, 1)
     Route: 065

REACTIONS (15)
  - Muscular weakness [Not Recovered/Not Resolved]
  - Dehydration [Unknown]
  - Haemoglobin decreased [Unknown]
  - Pyrexia [Not Recovered/Not Resolved]
  - Alanine aminotransferase increased [Unknown]
  - Malignant neoplasm progression [Not Recovered/Not Resolved]
  - Fall [Not Recovered/Not Resolved]
  - Acute kidney injury [Recovering/Resolving]
  - Hypotension [Not Recovered/Not Resolved]
  - Confusional state [Unknown]
  - Blood lactate dehydrogenase increased [Unknown]
  - Urine output decreased [Not Recovered/Not Resolved]
  - Rhabdomyolysis [Recovered/Resolved with Sequelae]
  - Aspartate aminotransferase increased [Unknown]
  - Blood albumin decreased [Unknown]

NARRATIVE: CASE EVENT DATE: 20160327
